FAERS Safety Report 5645818-2 (Version None)
Quarter: 2008Q1

REPORT INFORMATION
  Report Type: 
  Country: None (occurrence: None)
  Receive Date: 20080131
  Receipt Date: 20071211
  Transmission Date: 20080703
  Serious: No
  Sender: FDA-Public Use
  Company Number: 163-21880-07120648

PATIENT
  Age: 85 Year
  Sex: Female

DRUGS (2)
  1. REVLIMID [Suspect]
     Indication: MULTIPLE MYELOMA
     Dosage: 10 MG, EVERYDAY FOR DAYS 1-21,
     Route: 048
     Dates: start: 20061001
  2. DECADRON [Concomitant]

REACTIONS (1)
  - ANAEMIA [None]
